FAERS Safety Report 8741948 (Version 2)
Quarter: 2013Q4

REPORT INFORMATION
  Report Type: Report from Study
  Country: DE (occurrence: DE)
  Receive Date: 20120824
  Receipt Date: 20131001
  Transmission Date: 20140711
  Serious: Yes (Hospitalization)
  Sender: FDA-Public Use
  Company Number: DE-009507513-2012SP024377

PATIENT
  Age: 84 Year
  Sex: Male
  Weight: 80 kg

DRUGS (31)
  1. SUGAMMADEX SODIUM [Suspect]
     Indication: NEUROMUSCULAR BLOCKADE REVERSAL
     Dosage: UNK
     Route: 042
     Dates: start: 20120419, end: 20120419
  2. METOPROLOL [Concomitant]
     Indication: PRE-EXISTING DISEASE
     Dosage: 50 MG, QAM
     Route: 048
     Dates: start: 20110526
  3. TRIAMTERENE [Concomitant]
     Indication: PRE-EXISTING DISEASE
     Dosage: 25 MG, QAM
     Route: 048
     Dates: start: 20110517
  4. TAMSULOSIN HYDROCHLORIDE [Concomitant]
     Indication: PRE-EXISTING DISEASE
     Dosage: FREQUNCY: EVERY NIGHT
     Route: 048
     Dates: start: 20100415
  5. FUROSEMIDE [Concomitant]
     Indication: PRE-EXISTING DISEASE
     Dosage: 20 MG, BID
     Route: 048
     Dates: start: 20090805
  6. ASPIRIN [Concomitant]
     Indication: THROMBOSIS PROPHYLAXIS
     Dosage: FREQUENCY: EVERY AFTERNOON
     Dates: start: 20081015, end: 20120411
  7. ENOXAPARIN SODIUM [Concomitant]
     Indication: THROMBOSIS PROPHYLAXIS
     Dosage: FREQUENCY: EVERY NIGHT
     Route: 058
     Dates: start: 20120418
  8. CORRECTOL [Concomitant]
     Indication: PRODUCT USED FOR UNKNOWN INDICATION
     Dosage: INDICATION: ADVERSE EVENT
     Route: 054
     Dates: start: 20120423
  9. METOCLOPRAMIDE [Concomitant]
     Indication: PRODUCT USED FOR UNKNOWN INDICATION
     Dosage: INDICATION: ADVERSE EVENT
     Route: 048
     Dates: start: 20120423, end: 20120423
  10. CLINDAMYCIN [Concomitant]
     Indication: INFECTION PROPHYLAXIS
     Dosage: 600 MG, BID
     Route: 041
     Dates: start: 20120427, end: 20120503
  11. CEFUROXIME [Concomitant]
     Indication: INFECTION PROPHYLAXIS
     Dosage: 1.5 G, TID
     Route: 041
     Dates: start: 20120430, end: 20120502
  12. DIPYRONE [Concomitant]
     Indication: PRODUCT USED FOR UNKNOWN INDICATION
     Dosage: INDICATION: ADVERSE EVENT
     Route: 048
     Dates: start: 20120422
  13. CRIXOFOL [Concomitant]
     Indication: INDUCTION OF ANAESTHESIA
     Dosage: 200 MG, PRN
     Route: 040
     Dates: start: 20120419, end: 20120419
  14. PIRITRAMIDE [Concomitant]
     Indication: PRODUCT USED FOR UNKNOWN INDICATION
     Dosage: INDICATION: ADVERSE EVENT
     Route: 040
     Dates: start: 20120419, end: 20120419
  15. PARECOXIB [Concomitant]
     Indication: PRODUCT USED FOR UNKNOWN INDICATION
     Dosage: INDICATION: ADVERSE EVENT
     Route: 042
     Dates: start: 20120419, end: 20120419
  16. ROPIVACAINE [Concomitant]
     Indication: INDUCTION OF ANAESTHESIA
     Dosage: DOSE: 12000 MCG/HOUR
     Route: 053
     Dates: start: 20120419
  17. ISOFORINE [Concomitant]
     Indication: INDUCTION OF ANAESTHESIA
     Dosage: 0.6 %, PRN
     Route: 055
     Dates: start: 20120419, end: 20120419
  18. IBUPROFEN [Concomitant]
     Indication: ANKYLOSING SPONDYLITIS
     Dosage: 600 MG, QAM
     Route: 048
     Dates: start: 20110526, end: 20120418
  19. HYDROCHLOROTHIAZIDE [Concomitant]
     Indication: PRE-EXISTING DISEASE
     Dosage: 12.5 MG, QAM
     Route: 048
     Dates: start: 20110517
  20. ALLOPURINOL [Concomitant]
     Indication: PRE-EXISTING DISEASE
     Dosage: FREQUENCY: EVERY NIGHT
     Route: 048
     Dates: start: 20110526
  21. PANTOPRAZOLE [Concomitant]
     Indication: PROPHYLAXIS AGAINST GASTROINTESTINAL ULCER
     Dosage: 20 MG, QAM
     Route: 048
     Dates: start: 20110526, end: 20120418
  22. BEBETINA [Concomitant]
     Indication: PRODUCT USED FOR UNKNOWN INDICATION
     Dosage: INDICATION: ADVERSE EVENT
     Route: 041
     Dates: start: 20120419
  23. DIPYRONE [Concomitant]
     Indication: PRODUCT USED FOR UNKNOWN INDICATION
     Dosage: INDICATION: ADVERSE EVENT
     Route: 041
     Dates: start: 20120419
  24. CEFUROXIME [Concomitant]
     Indication: INFECTION PROPHYLAXIS
     Dosage: 1.5 G, TID
     Route: 041
     Dates: start: 20120419, end: 20120423
  25. REKAWAN [Concomitant]
     Indication: PRODUCT USED FOR UNKNOWN INDICATION
     Dosage: FREQUENCY: 6 TIMES PER DAY; INDICATION: ADVERSE EVENT
     Route: 048
     Dates: start: 20120427
  26. RIFAMPIN [Concomitant]
     Indication: INFECTION PROPHYLAXIS
     Dosage: 600 MG, QD
     Route: 041
     Dates: start: 20120430, end: 20120502
  27. REMIFENTANIL HYDROCHLORIDE [Concomitant]
     Indication: INDUCTION OF ANAESTHESIA
     Dosage: 1185 ?G, PRN
     Route: 042
     Dates: start: 20120419, end: 20120419
  28. CATAPRESSAN [Concomitant]
     Indication: PRODUCT USED FOR UNKNOWN INDICATION
     Dosage: INDICATION: ADVERSE EVENT
     Route: 040
     Dates: start: 20120419, end: 20120419
  29. ROPIVACAINE [Concomitant]
     Indication: INDUCTION OF ANAESTHESIA
     Dosage: 100 MG, ONCE
     Route: 053
     Dates: start: 20120419, end: 20120419
  30. BEBETINA [Concomitant]
     Indication: INDUCTION OF ANAESTHESIA
     Dosage: 1 G, ONCE
     Route: 041
     Dates: start: 20120419, end: 20120419
  31. CRIXOFOL [Concomitant]
     Indication: PRODUCT USED FOR UNKNOWN INDICATION
     Dosage: INDICATION: ADVERSE EVENT
     Route: 040
     Dates: start: 20120430, end: 20120430

REACTIONS (1)
  - Haematoma [Recovered/Resolved]
